FAERS Safety Report 7664030-9 (Version None)
Quarter: 2011Q3

REPORT INFORMATION
  Report Type: 
  Country: None (occurrence: None)
  Receive Date: 20110805
  Receipt Date: 20100802
  Transmission Date: 20111222
  Serious: No
  Sender: FDA-Public Use
  Company Number: US-ABBOTT-10P-163-0661656-00

PATIENT
  Sex: Female
  Weight: 56.75 kg

DRUGS (5)
  1. WELCHOL [Concomitant]
     Indication: PRODUCT USED FOR UNKNOWN INDICATION
  2. NIASPAN [Suspect]
     Indication: PRODUCT USED FOR UNKNOWN INDICATION
  3. FORTEO-SOL [Concomitant]
     Indication: BONE DISORDER
     Dosage: 600/2.4
  4. AMLOD/BENAST [Concomitant]
     Indication: PRODUCT USED FOR UNKNOWN INDICATION
     Dosage: 5/20 MG
  5. BYSTOLIC [Concomitant]
     Indication: PRODUCT USED FOR UNKNOWN INDICATION

REACTIONS (4)
  - INSOMNIA [None]
  - DYSPEPSIA [None]
  - URTICARIA [None]
  - PRURITUS [None]
